FAERS Safety Report 7218984-5 (Version None)
Quarter: 2011Q1

REPORT INFORMATION
  Report Type: 
  Country: None (occurrence: None)
  Receive Date: 20110111
  Receipt Date: 20110104
  Transmission Date: 20110831
  Serious: No
  Sender: FDA-Public Use
  Company Number: US-BIOGENIDEC-2010BI029242

PATIENT
  Age: 44 Year
  Sex: Female

DRUGS (2)
  1. BENADRYL [Concomitant]
     Indication: PROPHYLAXIS
     Route: 042
     Dates: start: 20070801
  2. TYSABRI [Suspect]
     Indication: MULTIPLE SCLEROSIS
     Route: 042
     Dates: start: 20070726

REACTIONS (8)
  - MUSCULAR WEAKNESS [None]
  - SINUSITIS [None]
  - ASTHENIA [None]
  - PAIN IN EXTREMITY [None]
  - HERPES ZOSTER [None]
  - URINARY TRACT INFECTION [None]
  - HEADACHE [None]
  - MULTIPLE SCLEROSIS RELAPSE [None]
